FAERS Safety Report 10660445 (Version 1)
Quarter: 2014Q4

REPORT INFORMATION
  Report Type: Spontaneous
  Country: US (occurrence: US)
  Receive Date: 20141217
  Receipt Date: 20141217
  Transmission Date: 20150529
  Serious: No
  Sender: FDA-Public Use
  Company Number: US-PURDUE-USA-2014-0111363

PATIENT
  Age: 54 Year
  Sex: Female

DRUGS (3)
  1. DILAUDID [Suspect]
     Active Substance: HYDROMORPHONE HYDROCHLORIDE
     Indication: PROCEDURAL PAIN
     Dosage: 4 MG, Q4H
     Dates: end: 20140216
  2. DILAUDID [Suspect]
     Active Substance: HYDROMORPHONE HYDROCHLORIDE
     Dosage: 8 MG, PRN
     Route: 048
     Dates: start: 20140216, end: 20140218
  3. FERROUS SULFATE [Suspect]
     Active Substance: FERROUS SULFATE\FERROUS SULFATE, DRIED
     Indication: PRODUCT USED FOR UNKNOWN INDICATION
     Dosage: UNKNOWN

REACTIONS (6)
  - Crying [Unknown]
  - Feeling abnormal [Unknown]
  - Negative thoughts [Unknown]
  - Vomiting [Unknown]
  - Depression [Unknown]
  - Sleep talking [Unknown]

NARRATIVE: CASE EVENT DATE: 20140216
